FAERS Safety Report 16911242 (Version 2)
Quarter: 2019Q4

REPORT INFORMATION
  Report Type: Report from Study
  Country: None (occurrence: US)
  Receive Date: 20191012
  Receipt Date: 20191204
  Transmission Date: 20200122
  Serious: Yes (Hospitalization)
  Sender: FDA-Public Use
  Company Number: US-ABBVIE-19K-163-2880900-00

PATIENT
  Sex: Female

DRUGS (2)
  1. HUMIRA [Suspect]
     Active Substance: ADALIMUMAB
     Indication: ANKYLOSING SPONDYLITIS
  2. HUMIRA [Suspect]
     Active Substance: ADALIMUMAB
     Indication: PSORIATIC ARTHROPATHY
     Dosage: CITRATE FREE
     Route: 058

REACTIONS (10)
  - Rotator cuff syndrome [Not Recovered/Not Resolved]
  - Intervertebral disc protrusion [Recovering/Resolving]
  - Temperature intolerance [Not Recovered/Not Resolved]
  - Depression [Unknown]
  - Inflammation [Recovering/Resolving]
  - Back pain [Unknown]
  - Neuralgia [Recovering/Resolving]
  - Musculoskeletal discomfort [Unknown]
  - Accident [Not Recovered/Not Resolved]
  - Joint stiffness [Not Recovered/Not Resolved]
